FAERS Safety Report 10257675 (Version 3)
Quarter: 2014Q3

REPORT INFORMATION
  Report Type: Report from Study
  Country: AU (occurrence: AU)
  Receive Date: 20140625
  Receipt Date: 20140919
  Transmission Date: 20150326
  Serious: Yes (Other)
  Sender: FDA-Public Use
  Company Number: PHNR2004AU01560

PATIENT
  Age: 26 Year
  Sex: Female
  Weight: 136.2 kg

DRUGS (10)
  1. CLOZARIL [Suspect]
     Active Substance: CLOZAPINE
     Dosage: 50 MG, UNK
     Route: 048
     Dates: start: 20061007
  2. RISPERIDONE. [Concomitant]
     Active Substance: RISPERIDONE
     Dosage: 4 MG, NOCTE (AT NIGHT)
     Route: 048
  3. PERINDOPRIL [Concomitant]
     Active Substance: PERINDOPRIL
     Dosage: UNK
  4. CLOZARIL [Suspect]
     Active Substance: CLOZAPINE
     Dosage: 300 MG, UNK
     Route: 048
  5. COVERSYL [Concomitant]
     Active Substance: PERINDOPRIL
     Dosage: 10 MG, MANE
  6. CLOZARIL [Suspect]
     Active Substance: CLOZAPINE
     Indication: SCHIZOPHRENIA
     Dosage: 12.5 MG, DAILY
     Route: 048
     Dates: start: 20040609
  7. CLOZARIL [Suspect]
     Active Substance: CLOZAPINE
     Dosage: 150 - 375 MG DAILY
     Route: 048
     Dates: start: 20061007
  8. CLOZARIL [Suspect]
     Active Substance: CLOZAPINE
     Dosage: 500 UKN, NOCTE (AT NIGHT)
     Route: 048
  9. CLOZARIL [Suspect]
     Active Substance: CLOZAPINE
     Dosage: 600 MG, DAILY
     Route: 048
     Dates: start: 20040817, end: 200509
  10. CLOZARIL [Suspect]
     Active Substance: CLOZAPINE
     Dosage: 550 MG, UNK
     Route: 048

REACTIONS (11)
  - Hypotension [Recovering/Resolving]
  - White blood cell count increased [Not Recovered/Not Resolved]
  - Headache [Recovering/Resolving]
  - Tachycardia [Recovering/Resolving]
  - Dysphagia [Recovering/Resolving]
  - Dysgeusia [Not Recovered/Not Resolved]
  - Leukocytosis [Recovering/Resolving]
  - Neutrophil count increased [Recovering/Resolving]
  - Chest pain [Recovering/Resolving]
  - Choking [Not Recovered/Not Resolved]
  - Salivary hypersecretion [Recovering/Resolving]

NARRATIVE: CASE EVENT DATE: 2004
